APPROVED DRUG PRODUCT: ROCURONIUM BROMIDE
Active Ingredient: ROCURONIUM BROMIDE
Strength: 100MG/10ML (10MG/ML)
Dosage Form/Route: INJECTABLE;INJECTION
Application: A213476 | Product #002 | TE Code: AP
Applicant: KNACK PHARMACEUTICALS INC
Approved: Jan 6, 2026 | RLD: No | RS: No | Type: RX